FAERS Safety Report 7528452-9 (Version None)
Quarter: 2011Q2

REPORT INFORMATION
  Report Type: 
  Country: None (occurrence: None)
  Receive Date: 20110607
  Receipt Date: 20110525
  Transmission Date: 20111010
  Serious: Yes (Hospitalization, Other)
  Sender: FDA-Public Use
  Company Number: US-ELI_LILLY_AND_COMPANY-US201012005238

PATIENT
  Sex: Female
  Weight: 56.236 kg

DRUGS (11)
  1. ASPIRIN [Concomitant]
     Dosage: UNK, DAILY (1/D)
  2. VITAMINS NOS [Concomitant]
     Dosage: UNK, DAILY (1/D)
  3. FORTEO [Suspect]
     Dosage: 20 UG, QD
  4. RESTASIS [Concomitant]
     Indication: DRY EYE
  5. METOPROLOL SUCCINATE [Concomitant]
  6. ASPIRIN [Concomitant]
     Dosage: UNK, UNKNOWN
     Route: 065
  7. FORTEO [Suspect]
     Dosage: 20 UG, DAILY (1/D)
     Route: 065
     Dates: start: 20110121
  8. LIPITOR [Concomitant]
  9. FORTEO [Suspect]
     Indication: OSTEOPOROSIS
     Dosage: 20 UG, DAILY (1/D)
     Route: 058
     Dates: start: 20101216, end: 20101216
  10. VITAMIN D [Concomitant]
     Dosage: UNK, WEEKLY (1/W)
  11. CALCIUM CARBONATE [Concomitant]

REACTIONS (6)
  - MUSCULAR WEAKNESS [None]
  - MALAISE [None]
  - DIZZINESS [None]
  - ADVERSE DRUG REACTION [None]
  - LOSS OF CONSCIOUSNESS [None]
  - FEELING ABNORMAL [None]
